FAERS Safety Report 16364935 (Version 2)
Quarter: 2019Q2

REPORT INFORMATION
  Report Type: Spontaneous
  Country: AT (occurrence: AT)
  Receive Date: 20190529
  Receipt Date: 20190603
  Transmission Date: 20190711
  Serious: Yes (Other)
  Sender: FDA-Public Use
  Company Number: AT-SA-2019SA143614

PATIENT
  Age: 58 Year
  Sex: Male

DRUGS (25)
  1. SORTIS [Concomitant]
     Active Substance: ATORVASTATIN
     Route: 048
  2. QUETIALAN [Concomitant]
     Active Substance: QUETIAPINE FUMARATE
     Route: 048
  3. MIRTABENE [Concomitant]
     Active Substance: MIRTAZAPINE
     Route: 048
  4. VERTIROSAN VITAMIN B6 [Concomitant]
  5. EUTHYROX N [Concomitant]
     Active Substance: LEVOTHYROXINE SODIUM
     Route: 048
  6. NOVALGIN (METAMIZOLE SODIUM) [Concomitant]
     Active Substance: METAMIZOLE SODIUM
     Route: 048
  7. CYMBALTA [Concomitant]
     Active Substance: DULOXETINE HYDROCHLORIDE
     Route: 048
  8. EZETROL [Concomitant]
     Active Substance: EZETIMIBE
     Route: 048
  9. CONCOR COR [Concomitant]
     Active Substance: BISOPROLOL FUMARATE
     Route: 048
  10. PRALUENT [Suspect]
     Active Substance: ALIROCUMAB
     Dosage: UNK
     Dates: start: 201805, end: 201805
  11. FERROGRAD-FOL [Concomitant]
     Route: 048
  12. SCHERIPROCT [CINCHOCAINE HYDROCHLORIDE;PREDNISOLONE CAPROATE] [Concomitant]
     Route: 003
  13. NEUROBION FORTE [CYANOCOBALAMIN;PYRIDOXINE HYDROCHLORIDE;THIAMINE DISU [Concomitant]
     Route: 048
  14. FAMOTIDIN GENERICON PHARMA [Concomitant]
     Route: 048
  15. DUROTIV [Concomitant]
     Active Substance: ESOMEPRAZOLE
     Route: 048
  16. ANAFRANIL [Concomitant]
     Active Substance: CLOMIPRAMINE HYDROCHLORIDE
     Route: 048
  17. DANCOR [Concomitant]
     Active Substance: NICORANDIL
     Route: 048
  18. HYDROMORPHONE HYDROCHLORIDE. [Concomitant]
     Active Substance: HYDROMORPHONE HYDROCHLORIDE
     Route: 048
  19. THROMBO ASS [Concomitant]
     Active Substance: ASPIRIN
     Route: 048
  20. PROSCAR [Concomitant]
     Active Substance: FINASTERIDE
     Route: 048
  21. PRALUENT [Suspect]
     Active Substance: ALIROCUMAB
     Indication: HYPERLIPIDAEMIA
     Dosage: UNK
     Dates: start: 201712, end: 201805
  22. SCHERIPROCT [CINCHOCAINE HYDROCHLORIDE;PREDNISOLONE CAPROATE] [Concomitant]
  23. XANOR [Concomitant]
     Active Substance: ALPRAZOLAM
     Route: 048
  24. HYDAL [Concomitant]
     Active Substance: HYDROMORPHONE HYDROCHLORIDE
     Route: 048
  25. PREGABALIN. [Concomitant]
     Active Substance: PREGABALIN
     Route: 048

REACTIONS (1)
  - Skin fragility [Unknown]

NARRATIVE: CASE EVENT DATE: 201902
